FAERS Safety Report 9248841 (Version 1)
Quarter: 2013Q2

REPORT INFORMATION
  Report Type: Spontaneous
  Country: US (occurrence: None)
  Receive Date: 20130419
  Receipt Date: 20130419
  Transmission Date: 20140414
  Serious: Yes (Life-Threatening, Disabling, Other)
  Sender: FDA-Public Use
  Company Number: None

PATIENT
  Age: 30 Year
  Sex: Male
  Weight: 113.4 kg

DRUGS (1)
  1. BENZONATATE [Suspect]
     Indication: COUGH
     Dates: start: 20130810, end: 20130813

REACTIONS (3)
  - Dyspnoea [None]
  - Asthma [None]
  - Panic attack [None]
